FAERS Safety Report 19572839 (Version 1)
Quarter: 2021Q3

REPORT INFORMATION
  Report Type: Spontaneous
  Country: NL (occurrence: NL)
  Receive Date: 20210716
  Receipt Date: 20210716
  Transmission Date: 20211014
  Serious: Yes (Death, Life-Threatening, Hospitalization)
  Sender: FDA-Public Use
  Company Number: NL-TEVA-2021-NL-1932676

PATIENT
  Age: 83 Year
  Sex: Female
  Weight: 54 kg

DRUGS (4)
  1. OXAZEPAM TABLET 10MG / BRAND NAME NOT SPECIFIED [Concomitant]
     Active Substance: OXAZEPAM
     Dosage: THERAPY START DATE ASKU, THERAPY END DATE ASKU, 10 MG
  2. ACENOCOUMAROL TABLET 1MG / BRAND NAME NOT SPECIFIED [Concomitant]
     Active Substance: ACENOCOUMAROL
     Dosage: THERAPY START DATE ASKU, THERAPY END DATE ASKU, 1 MG
  3. FUROSEMIDE TABLET 40MG / BRAND NAME NOT SPECIFIED [Concomitant]
     Indication: CARDIAC FAILURE
     Dosage: 1 DOSAGE FORMS DAILY; 1 DD 1 IN THE EVENING,THERAPY START DATE ASKU, THERAPY END DATE ASKU
  4. COTRIMOXAZOL 960 TABLET 160/800MG / BRAND NAME NOT SPECIFIED [Suspect]
     Active Substance: SULFAMETHOXAZOLE\TRIMETHOPRIM
     Indication: CYSTITIS
     Dosage: 960 MG, 1DF,STOPPED EARLY DUE TO GAGGING AND MALAISE
     Dates: start: 20210325, end: 20210331

REACTIONS (12)
  - Pneumonia [Fatal]
  - Ecchymosis [Fatal]
  - Sputum retention [Unknown]
  - Fatigue [Unknown]
  - Headache [Fatal]
  - Vomiting [Unknown]
  - Malaise [Unknown]
  - Urine output decreased [Unknown]
  - Abdominal pain [Unknown]
  - Arthralgia [Unknown]
  - Myalgia [Unknown]
  - Nausea [Unknown]

NARRATIVE: CASE EVENT DATE: 20210326
